FAERS Safety Report 7235297-6 (Version None)
Quarter: 2011Q1

REPORT INFORMATION
  Report Type: 
  Country: None (occurrence: None)
  Receive Date: 20110111
  Receipt Date: 20110104
  Transmission Date: 20110831
  Serious: Yes (Other)
  Sender: FDA-Public Use
  Company Number: 20109794

PATIENT
  Sex: Female

DRUGS (1)
  1. LIORESAL [Suspect]
     Indication: MUSCLE SPASTICITY
     Dosage: DAILY, INTRATHECAL
     Route: 037

REACTIONS (5)
  - DEVICE CONNECTION ISSUE [None]
  - PSEUDOMENINGOCELE [None]
  - DEVICE LEAKAGE [None]
  - DEVICE DAMAGE [None]
  - DEVICE DISLOCATION [None]
